FAERS Safety Report 25078417 (Version 1)
Quarter: 2025Q1

REPORT INFORMATION
  Report Type: Spontaneous
  Country: US (occurrence: None)
  Receive Date: 20250313
  Receipt Date: 20250313
  Transmission Date: 20250409
  Serious: No
  Sender: FDA-CTU
  Company Number: None

PATIENT
  Age: 79 Year
  Sex: Male
  Weight: 90.45 kg

DRUGS (7)
  1. REVLIMID [Suspect]
     Active Substance: LENALIDOMIDE
     Indication: Follicular lymphoma
     Route: 048
     Dates: start: 20250116
  2. ACYCLOVIR [Concomitant]
     Active Substance: ACYCLOVIR
  3. HYDRALAZINE [Concomitant]
     Active Substance: HYDRALAZINE HYDROCHLORIDE
  4. lidocaine viscous soln [Concomitant]
  5. METOPROLOL [Concomitant]
     Active Substance: METOPROLOL
  6. PREDNISOLONE [Concomitant]
     Active Substance: PREDNISOLONE
  7. VALSARTAN AND HYDROCHLOROTHIAZIDE [Concomitant]
     Active Substance: HYDROCHLOROTHIAZIDE\VALSARTAN

REACTIONS (1)
  - Constipation [None]

NARRATIVE: CASE EVENT DATE: 20250313
